FAERS Safety Report 4525938-6 (Version None)
Quarter: 2004Q4

REPORT INFORMATION
  Report Type: 
  Country: None (occurrence: None)
  Receive Date: 20041213
  Receipt Date: 20041208
  Transmission Date: 20050328
  Serious: Yes (Life-Threatening)
  Sender: FDA-Public Use
  Company Number: TH-MERCK-0412THA00002

PATIENT
  Age: 21 Month
  Sex: Male
  Weight: 13 kg

DRUGS (6)
  1. CANCIDAS [Suspect]
     Indication: ASPERGILLOSIS
     Route: 042
     Dates: start: 20030917, end: 20031110
  2. IMIPENEM [Concomitant]
     Indication: PNEUMONIA
     Route: 042
     Dates: start: 20030915, end: 20031030
  3. AMIKACIN [Concomitant]
     Indication: PNEUMONIA
     Route: 042
     Dates: start: 20030910, end: 20031007
  4. VANCOMYCIN [Concomitant]
     Route: 042
     Dates: start: 20030925, end: 20031009
  5. CHOLESTYRAMINE RESIN [Concomitant]
     Route: 048
     Dates: start: 20030916, end: 20031029
  6. AMPHOTERICIN B [Concomitant]
     Indication: ASPERGILLOSIS
     Route: 042
     Dates: start: 20030915, end: 20030919

REACTIONS (4)
  - HYPERKALAEMIA [None]
  - HYPOKALAEMIA [None]
  - JAUNDICE CHOLESTATIC [None]
  - VENTRICULAR ARRHYTHMIA [None]
